FAERS Safety Report 10137231 (Version 1)
Quarter: 2014Q2

REPORT INFORMATION
  Report Type: Spontaneous
  Country: US (occurrence: US)
  Receive Date: 20140429
  Receipt Date: 20140429
  Transmission Date: 20141212
  Serious: No
  Sender: FDA-Public Use
  Company Number: US-ABBVIE-14P-163-1212668-00

PATIENT
  Age: 68 Year
  Sex: Male
  Weight: 113.5 kg

DRUGS (8)
  1. ANDROGEL [Suspect]
     Indication: BLOOD TESTOSTERONE DECREASED
     Route: 061
     Dates: start: 201401, end: 201402
  2. ANDROGEL [Suspect]
     Dosage: 2 PUMPS DAILY
     Route: 061
     Dates: start: 201402, end: 20140306
  3. ANDROGEL [Suspect]
     Dosage: 3 PUMPS DAILY
     Route: 061
     Dates: start: 20140306
  4. HYDROCHLOROTHIAZIDE [Concomitant]
     Indication: HYPERTENSION
  5. LISINOPRIL [Concomitant]
     Indication: HYPERTENSION
  6. NPH INSULIN [Concomitant]
     Indication: TYPE 2 DIABETES MELLITUS
     Dosage: 38 UNITS IN MORNING, 34 UNITS AT NIGHT
     Route: 050
  7. METFORMIN [Concomitant]
     Indication: TYPE 2 DIABETES MELLITUS
  8. GLIPIZIDE [Concomitant]
     Indication: TYPE 2 DIABETES MELLITUS

REACTIONS (4)
  - Drug administered at inappropriate site [Not Recovered/Not Resolved]
  - Drug ineffective [Not Recovered/Not Resolved]
  - Libido decreased [Not Recovered/Not Resolved]
  - Blood testosterone free abnormal [Not Recovered/Not Resolved]
